FAERS Safety Report 10955924 (Version 1)
Quarter: 2015Q1

REPORT INFORMATION
  Report Type: Spontaneous
  Country: US (occurrence: None)
  Receive Date: 20150325
  Receipt Date: 20150325
  Transmission Date: 20150721
  Serious: Yes (Hospitalization)
  Sender: FDA-Public Use
  Company Number: None

PATIENT
  Age: 76 Year
  Sex: Female
  Weight: 54.43 kg

DRUGS (5)
  1. BEVACIZUMAB [Suspect]
     Active Substance: BEVACIZUMAB
     Route: 042
  2. ERLOTINIB [Suspect]
     Active Substance: ERLOTINIB
     Indication: NON-SMALL CELL LUNG CANCER METASTATIC
     Dosage: EVERY 21D
     Route: 048
  3. BEVACIZUMAB [Concomitant]
     Active Substance: BEVACIZUMAB
  4. ERLOTINIB [Concomitant]
     Active Substance: ERLOTINIB
  5. ACCRU RC11226 [Concomitant]

REACTIONS (8)
  - Disorientation [None]
  - Laceration [None]
  - Syncope [None]
  - Unresponsive to stimuli [None]
  - Seizure [None]
  - Head injury [None]
  - Dehydration [None]
  - Fall [None]

NARRATIVE: CASE EVENT DATE: 20150318
